FAERS Safety Report 5799397-X (Version None)
Quarter: 2008Q3

REPORT INFORMATION
  Report Type: 
  Country: None (occurrence: None)
  Receive Date: 20080703
  Receipt Date: 20080627
  Transmission Date: 20090109
  Serious: Yes (Other)
  Sender: FDA-Public Use
  Company Number: AT-PFIZER INC-2008054127

PATIENT
  Age: 31 Year
  Sex: Male
  Weight: 101 kg

DRUGS (1)
  1. ZIPRASIDONE (CAPS) [Suspect]
     Route: 048

REACTIONS (2)
  - ERYTHEMA [None]
  - SWELLING FACE [None]
